FAERS Safety Report 15762727 (Version 2)
Quarter: 2019Q2

REPORT INFORMATION
  Report Type: Spontaneous
  Country: PT (occurrence: PT)
  Receive Date: 20181226
  Receipt Date: 20190415
  Transmission Date: 20190711
  Serious: Yes (Other)
  Sender: FDA-Public Use
  Company Number: PT-MYLANLABS-2018M1095798

PATIENT
  Age: 23 Year
  Sex: Female

DRUGS (4)
  1. LEVETIRACETAM. [Suspect]
     Active Substance: LEVETIRACETAM
     Indication: SEVERE MYOCLONIC EPILEPSY OF INFANCY
     Dosage: UNK
     Route: 065
  2. VALPROIC ACID. [Suspect]
     Active Substance: VALPROIC ACID
     Indication: SEVERE MYOCLONIC EPILEPSY OF INFANCY
     Dosage: UNK
     Route: 065
  3. TOPIRAMATE. [Suspect]
     Active Substance: TOPIRAMATE
     Indication: SEVERE MYOCLONIC EPILEPSY OF INFANCY
     Dosage: UNK
     Route: 065
  4. CLOBAZAM. [Suspect]
     Active Substance: CLOBAZAM
     Indication: SEVERE MYOCLONIC EPILEPSY OF INFANCY
     Dosage: UNK
     Route: 065

REACTIONS (1)
  - Gingival hypertrophy [Recovered/Resolved]
